FAERS Safety Report 14064840 (Version 1)
Quarter: 2017Q4

REPORT INFORMATION
  Report Type: Other
  Country: CA (occurrence: CA)
  Receive Date: 20171009
  Receipt Date: 20171009
  Transmission Date: 20180321
  Serious: Yes (Other)
  Sender: FDA-Public Use
  Company Number: CA-APOTEX-2017AP019314

PATIENT
  Age: 84 Year
  Sex: Male

DRUGS (1)
  1. APO-SALVENT [Suspect]
     Active Substance: ALBUTEROL
     Indication: ASTHMA
     Route: 065

REACTIONS (4)
  - Benign prostatic hyperplasia [Not Recovered/Not Resolved]
  - Hernia [Not Recovered/Not Resolved]
  - Brugada syndrome [Not Recovered/Not Resolved]
  - Hypertension [Not Recovered/Not Resolved]
